FAERS Safety Report 8645538 (Version 2)
Quarter: 2012Q4

REPORT INFORMATION
  Report Type: 
  Country: US (occurrence: US)
  Receive Date: 20120702
  Receipt Date: 20120912
  Transmission Date: 20130627
  Serious: Yes (Hospitalization, Other)
  Sender: FDA-Public Use
  Company Number: US-TEVA-345820USA

PATIENT
  Age: 71 None
  Sex: Female
  Weight: 68.1 kg

DRUGS (4)
  1. CARBAMAZEPINE [Suspect]
     Indication: TRIGEMINAL NEURALGIA
     Route: 048
  2. PREGABALIN [Suspect]
     Indication: TRIGEMINAL NEURALGIA
     Dosage: 150 Milligram Daily;
     Route: 048
  3. METFORMIN [Concomitant]
     Indication: DIABETES MELLITUS
     Dosage: 1000 Milligram Daily;
  4. GLIBENCLAMIDE [Concomitant]
     Indication: DIABETES MELLITUS
     Dosage: 5 Milligram Daily;

REACTIONS (10)
  - Drug level increased [Recovered/Resolved]
  - Intentional drug misuse [Unknown]
  - Hypophagia [Recovered/Resolved]
  - Aphagia [Recovered/Resolved]
  - Abasia [Recovered/Resolved]
  - Communication disorder [Recovered/Resolved]
  - Loss of control of legs [Recovered/Resolved]
  - Drug administration error [Unknown]
  - Pain [Recovered/Resolved]
  - Balance disorder [Unknown]
